FAERS Safety Report 6522326-8 (Version None)
Quarter: 2009Q4

REPORT INFORMATION
  Report Type: 
  Country: None (occurrence: None)
  Receive Date: 20091230
  Receipt Date: 20091222
  Transmission Date: 20100525
  Serious: Yes (Death, Life-Threatening, Hospitalization)
  Sender: FDA-Public Use
  Company Number: B0619432A

PATIENT
  Sex: Male

DRUGS (8)
  1. RANITIDINE HCL [Suspect]
     Indication: DRUG USE FOR UNKNOWN INDICATION
     Route: 048
     Dates: start: 20090929, end: 20091109
  2. TIENAM [Suspect]
     Indication: INFECTION
     Dosage: 500MG VARIABLE DOSE
     Route: 042
     Dates: start: 20090926, end: 20091107
  3. CIFLOX [Suspect]
     Indication: INFECTION
     Dosage: 400MG VARIABLE DOSE
     Route: 042
     Dates: start: 20090921, end: 20091107
  4. ANAFRANIL [Suspect]
     Indication: DEPRESSION
     Dosage: 75MG PER DAY
     Route: 048
     Dates: start: 20091103, end: 20091108
  5. KARDEGIC [Suspect]
     Indication: DRUG USE FOR UNKNOWN INDICATION
     Dosage: 160MG PER DAY
     Route: 048
     Dates: start: 20091103, end: 20091107
  6. LASILIX [Suspect]
     Indication: DRUG USE FOR UNKNOWN INDICATION
     Dosage: 40MG UNKNOWN
     Route: 048
  7. LEXOMIL [Suspect]
     Indication: DRUG USE FOR UNKNOWN INDICATION
     Route: 048
     Dates: start: 20091104, end: 20091109
  8. DUPHALAC [Suspect]
     Indication: DRUG USE FOR UNKNOWN INDICATION
     Route: 048
     Dates: start: 20091104, end: 20091107

REACTIONS (10)
  - BLISTER [None]
  - C-REACTIVE PROTEIN INCREASED [None]
  - CHILLS [None]
  - DEHYDRATION [None]
  - PYREXIA [None]
  - RASH MACULAR [None]
  - SKIN DISORDER [None]
  - TACHYCARDIA [None]
  - TOXIC EPIDERMAL NECROLYSIS [None]
  - WHITE BLOOD CELL COUNT INCREASED [None]
